FAERS Safety Report 7677601-0 (Version None)
Quarter: 2011Q3

REPORT INFORMATION
  Report Type: 
  Country: None (occurrence: None)
  Receive Date: 20110811
  Receipt Date: 20110811
  Transmission Date: 20111222
  Serious: Yes (Life-Threatening, Hospitalization)
  Sender: FDA-Public Use
  Company Number: None

PATIENT
  Age: 39 Year
  Sex: Female
  Weight: 88.45 kg

DRUGS (1)
  1. YAZ [Suspect]
     Indication: ACNE
     Dosage: ONE PILL
     Route: 048
     Dates: start: 20091215, end: 20100503

REACTIONS (3)
  - GALLBLADDER DISORDER [None]
  - INTRACARDIAC THROMBUS [None]
  - PULMONARY EMBOLISM [None]
